FAERS Safety Report 21166009 (Version 1)
Quarter: 2022Q3

REPORT INFORMATION
  Report Type: Other
  Country: US (occurrence: None)
  Receive Date: 20220803
  Receipt Date: 20220803
  Transmission Date: 20221027
  Serious: Yes (Other)
  Sender: FDA-Public Use
  Company Number: US-ROCHE-3150553

PATIENT
  Sex: Female

DRUGS (1)
  1. XELODA [Suspect]
     Active Substance: CAPECITABINE
     Indication: Neoplasm malignant
     Dosage: TAKE 4 TABLET(S) BY MOUTH TWICE A DAY FOR 2 WEEK(S) ON, 1 WEEK(S) OFF
     Route: 048

REACTIONS (2)
  - Neoplasm malignant [Unknown]
  - Fracture [Unknown]
